FAERS Safety Report 7919294-0 (Version None)
Quarter: 2011Q4

REPORT INFORMATION
  Report Type: 
  Country: None (occurrence: None)
  Receive Date: 20111115
  Receipt Date: 20111115
  Transmission Date: 20120403
  Serious: Yes (Other)
  Sender: FDA-Public Use
  Company Number: None

PATIENT
  Sex: Female
  Weight: 48.5349 kg

DRUGS (1)
  1. ZOLPIDEM [Suspect]
     Indication: SLEEP DISORDER
     Dosage: 10MG AS NEEDED ORAL
     Route: 048

REACTIONS (4)
  - WEIGHT DECREASED [None]
  - PRODUCT SUBSTITUTION ISSUE [None]
  - AMNESIA [None]
  - MENTAL IMPAIRMENT [None]
